FAERS Safety Report 21158892 (Version 1)
Quarter: 2022Q3

REPORT INFORMATION
  Report Type: Spontaneous
  Country: US (occurrence: US)
  Receive Date: 20220802
  Receipt Date: 20220802
  Transmission Date: 20221027
  Serious: No
  Sender: FDA-Public Use
  Company Number: US-ORGANON-O2207USA001516

PATIENT
  Age: 58 Year
  Sex: Male

DRUGS (6)
  1. MAXALT [Suspect]
     Active Substance: RIZATRIPTAN BENZOATE
     Indication: Thunderclap headache
     Dosage: UNK
     Route: 048
  2. SCOPOLAMINE [Concomitant]
     Active Substance: SCOPOLAMINE
     Indication: Thunderclap headache
     Dosage: PATCH
  3. FIORICET [Concomitant]
     Active Substance: ACETAMINOPHEN\BUTALBITAL\CAFFEINE
     Indication: Thunderclap headache
     Dosage: UNK
  4. SUMATRIPTAN [Concomitant]
     Active Substance: SUMATRIPTAN
     Indication: Thunderclap headache
     Dosage: UNK
  5. RIMEGEPANT [Concomitant]
     Active Substance: RIMEGEPANT
     Indication: Thunderclap headache
     Dosage: UNK
  6. IBUPROFEN [Concomitant]
     Active Substance: IBUPROFEN
     Indication: Thunderclap headache
     Dosage: UNK

REACTIONS (1)
  - Product use in unapproved indication [Unknown]
